FAERS Safety Report 23279883 (Version 8)
Quarter: 2025Q2

REPORT INFORMATION
  Report Type: Spontaneous
  Country: US (occurrence: US)
  Receive Date: 20231209
  Receipt Date: 20250403
  Transmission Date: 20250717
  Serious: Yes (Hospitalization, Other)
  Sender: UNITED THERAPEUTICS
  Company Number: US-UNITED THERAPEUTICS-UNT-2023-030381

PATIENT
  Sex: Male

DRUGS (15)
  1. REMODULIN [Suspect]
     Active Substance: TREPROSTINIL
     Indication: Pulmonary arterial hypertension
  2. REMODULIN [Suspect]
     Active Substance: TREPROSTINIL
  3. REMODULIN [Suspect]
     Active Substance: TREPROSTINIL
  4. REMODULIN [Suspect]
     Active Substance: TREPROSTINIL
  5. REMODULIN [Suspect]
     Active Substance: TREPROSTINIL
  6. REMODULIN [Suspect]
     Active Substance: TREPROSTINIL
     Indication: Pulmonary arterial hypertension
  7. REMODULIN [Suspect]
     Active Substance: TREPROSTINIL
  8. REMODULIN [Suspect]
     Active Substance: TREPROSTINIL
  9. REMODULIN [Suspect]
     Active Substance: TREPROSTINIL
  10. REMODULIN [Suspect]
     Active Substance: TREPROSTINIL
  11. REMODULIN [Suspect]
     Active Substance: TREPROSTINIL
  12. REMODULIN [Suspect]
     Active Substance: TREPROSTINIL
  13. RANEXA [Suspect]
     Active Substance: RANOLAZINE
     Indication: Angina pectoris
  14. TORSEMIDE [Suspect]
     Active Substance: TORSEMIDE
     Indication: Product used for unknown indication
  15. OXYGEN [Concomitant]
     Active Substance: OXYGEN
     Indication: Product used for unknown indication

REACTIONS (30)
  - Angina pectoris [Not Recovered/Not Resolved]
  - Cerebral hypoperfusion [Unknown]
  - Hypoxia [Unknown]
  - Pneumonia [Unknown]
  - Sepsis [Unknown]
  - Oxygen consumption increased [Unknown]
  - Blood pressure decreased [Unknown]
  - Fluid retention [Unknown]
  - Pain in jaw [Recovered/Resolved]
  - Mental disorder [Unknown]
  - Obsessive-compulsive disorder [Unknown]
  - Carbon dioxide increased [Unknown]
  - Delusion [Unknown]
  - Cognitive disorder [Unknown]
  - Confusional state [Unknown]
  - Device difficult to use [Unknown]
  - Device information output issue [Not Recovered/Not Resolved]
  - Therapy non-responder [Unknown]
  - Dizziness exertional [Unknown]
  - Dizziness postural [Unknown]
  - Swelling [Unknown]
  - Dyspnoea [Not Recovered/Not Resolved]
  - Seasonal allergy [Unknown]
  - Anxiety [Unknown]
  - Intentional medical device removal by patient [Unknown]
  - Device failure [Unknown]
  - Device wireless communication issue [Not Recovered/Not Resolved]
  - Device issue [Unknown]
  - Device connection issue [Unknown]
  - Product identification number issue [Unknown]

NARRATIVE: CASE EVENT DATE: 20230101
